FAERS Safety Report 8317187-0 (Version None)
Quarter: 2012Q2

REPORT INFORMATION
  Report Type: 
  Country: None (occurrence: None)
  Receive Date: 20120427
  Receipt Date: 20120417
  Transmission Date: 20120825
  Serious: Yes (Other)
  Sender: FDA-Public Use
  Company Number: DE-ELI_LILLY_AND_COMPANY-DE201204005452

PATIENT
  Age: 74 Year
  Sex: Male

DRUGS (5)
  1. TILIDIN [Concomitant]
  2. FORTEO [Suspect]
     Indication: OSTEOPOROSIS
     Dosage: UNK, QD
     Route: 058
     Dates: start: 20120314
  3. CORTISONE ACETATE [Concomitant]
  4. ASPIRIN [Concomitant]
     Indication: CARDIOVASCULAR DISORDER
     Dosage: 150 MG, UNK
  5. PROTELOS [Concomitant]

REACTIONS (2)
  - INJECTION SITE HAEMATOMA [None]
  - RIB FRACTURE [None]
